FAERS Safety Report 9283520 (Version 1)
Quarter: 2013Q2

REPORT INFORMATION
  Report Type: Spontaneous
  Country: US (occurrence: None)
  Receive Date: 20130425
  Receipt Date: 20130425
  Transmission Date: 20140414
  Serious: Yes (Other)
  Sender: FDA-Public Use
  Company Number: 2013035528

PATIENT
  Age: 57 Year
  Sex: 0

DRUGS (1)
  1. IVIG (IMMUNE GLOBULIN INTRAVENOUS (HUMAN) 10% LIQUID) [Suspect]
     Indication: TRANSPLANT REJECTION
     Route: 042

REACTIONS (4)
  - Off label use [None]
  - Polyomavirus-associated nephropathy [None]
  - BK virus infection [None]
  - Disease progression [None]
